FAERS Safety Report 5742885-2 (Version None)
Quarter: 2008Q2

REPORT INFORMATION
  Report Type: 
  Country: None (occurrence: None)
  Receive Date: 20080515
  Receipt Date: 20080515
  Transmission Date: 20081010
  Serious: Yes (Hospitalization)
  Sender: FDA-Public Use
  Company Number: None

PATIENT
  Age: 73 Year
  Sex: Male
  Weight: 67.1324 kg

DRUGS (12)
  1. DIGITEK 0.125 MG; ACTAVIS TOTOWA MYLAN BERTEK [Suspect]
     Indication: ARRHYTHMIA
     Dosage: 0.125 MG ONCE DAILY ORAL
     Route: 048
     Dates: start: 20080316, end: 20080418
  2. DIGITEK 0.125 MG; ACTAVIS TOTOWA MYLAN BERTEK [Suspect]
     Indication: CARDIAC FAILURE CONGESTIVE
     Dosage: 0.125 MG ONCE DAILY ORAL
     Route: 048
     Dates: start: 20080316, end: 20080418
  3. LASIX [Concomitant]
  4. KLOR-CON [Concomitant]
  5. MAG-OX [Concomitant]
  6. PACERONE [Concomitant]
  7. COUMADIN [Concomitant]
  8. COREG [Concomitant]
  9. LEVOTHYROXINE SODIUM [Concomitant]
  10. LEXAPRO [Concomitant]
  11. CLARINEX [Concomitant]
  12. NASONEX [Concomitant]

REACTIONS (11)
  - ANOREXIA [None]
  - ASTHENIA [None]
  - BRAIN NATRIURETIC PEPTIDE INCREASED [None]
  - CARDIAC FAILURE CONGESTIVE [None]
  - CONDITION AGGRAVATED [None]
  - DEHYDRATION [None]
  - DIARRHOEA [None]
  - DYSPNOEA [None]
  - HEART RATE INCREASED [None]
  - PHARMACEUTICAL PRODUCT COMPLAINT [None]
  - PULMONARY CONGESTION [None]
